FAERS Safety Report 10324767 (Version 2)
Quarter: 2015Q1

REPORT INFORMATION
  Report Type: Other
  Country: US (occurrence: US)
  Receive Date: 20140720
  Receipt Date: 20150130
  Transmission Date: 20150720
  Serious: Yes (Death, Other)
  Sender: FDA-Public Use
  Company Number: US-GSKPPD-2014GSK022552

PATIENT
  Age: 72 Year
  Sex: Female

DRUGS (8)
  1. TORMESIDE [Concomitant]
  2. COUMADIN [Concomitant]
     Active Substance: WARFARIN SODIUM
     Dates: end: 200301
  3. LOPRESSOR [Concomitant]
     Active Substance: METOPROLOL TARTRATE
  4. CAPTOPRIL. [Concomitant]
     Active Substance: CAPTOPRIL
  5. DIGOXIN. [Concomitant]
     Active Substance: DIGOXIN
     Dates: end: 200301
  6. AVANDIA [Suspect]
     Active Substance: ROSIGLITAZONE MALEATE
     Indication: DIABETES MELLITUS
     Dosage: DATES OF AVANDIA USE COULD NOT BE CONFIRMED IN RECORDS REVIEWED.
     Route: 048
  7. TOPROL XL [Concomitant]
     Active Substance: METOPROLOL SUCCINATE
  8. ZESTRIL [Concomitant]
     Active Substance: LISINOPRIL

REACTIONS (2)
  - Cardiac failure congestive [Unknown]
  - Cerebrovascular accident [Fatal]

NARRATIVE: CASE EVENT DATE: 20010306
